FAERS Safety Report 9160169 (Version 1)
Quarter: 2013Q1

REPORT INFORMATION
  Report Type: Spontaneous
  Country: NG (occurrence: None)
  Receive Date: 20130220
  Receipt Date: 20130220
  Transmission Date: 20140127
  Serious: Yes (Hospitalization, Other)
  Sender: FDA-Public Use
  Company Number: AUR-APL-2013-01286

PATIENT
  Age: 40 Year
  Sex: Female

DRUGS (4)
  1. NEVIRAPINE (NEVIRAPINE) [Suspect]
     Indication: ANTIRETROVIRAL THERAPY
     Dosage: 400 MG (200 MG, 2 IN 1 D)
  2. TRUVADA (TRUVADA/01778501) [Suspect]
     Indication: ANTIRETROVIRAL THERAPY
  3. PIROXICAM (PIROXICAM) [Concomitant]
  4. ACETAMINOPHEN (PARACETAMOL) [Concomitant]

REACTIONS (5)
  - Dermatomyositis [None]
  - Immune reconstitution inflammatory syndrome [None]
  - Erythema [None]
  - Aspartate aminotransferase increased [None]
  - Myopathy [None]
